FAERS Safety Report 7328502 (Version 3)
Quarter: 2013Q3

REPORT INFORMATION
  Report Type: Report from Study
  Country: US (occurrence: US)
  Receive Date: 20100323
  Receipt Date: 20130703
  Transmission Date: 20140515
  Serious: Yes (Hospitalization)
  Sender: FDA-Public Use
  Company Number: US-JNJFOC-20100304297

PATIENT
  Age: 72 Year
  Sex: Female
  Weight: 75.3 kg

DRUGS (11)
  1. INFLIXIMAB [Suspect]
     Indication: PSORIASIS
     Route: 042
     Dates: start: 20100113
  2. INFLIXIMAB [Suspect]
     Indication: PSORIASIS
     Route: 042
     Dates: start: 20030106
  3. MACROBID (NITROFURANTOIN) [Suspect]
     Indication: URINARY TRACT INFECTION
     Dates: start: 20100113
  4. PREDNISONE [Concomitant]
  5. CELLCEPT [Concomitant]
     Route: 048
  6. OMEPRAZOLE [Concomitant]
  7. ALENDRONATE [Concomitant]
  8. LIPITOR [Concomitant]
  9. DITROPAN [Concomitant]
  10. KEFLEX [Concomitant]
  11. ESTRACE [Concomitant]
     Route: 067

REACTIONS (5)
  - Hypovolaemic shock [Recovered/Resolved]
  - Nausea [Recovered/Resolved]
  - Vomiting [Recovered/Resolved]
  - Pyrexia [Recovered/Resolved]
  - Fatigue [Recovered/Resolved]
